FAERS Safety Report 5014726-2 (Version None)
Quarter: 2006Q2

REPORT INFORMATION
  Report Type: 
  Country: None (occurrence: None)
  Receive Date: 20060531
  Receipt Date: 20060408
  Transmission Date: 20061013
  Serious: Yes (Hospitalization)
  Sender: FDA-Public Use
  Company Number: JP-JPN-A200601178

PATIENT
  Sex: Female

DRUGS (5)
  1. PAXIL [Suspect]
     Indication: DEPRESSION
     Dosage: 40MG PER DAY
     Route: 048
  2. MEILAX [Concomitant]
     Indication: ANXIETY
  3. MYSLEE [Concomitant]
     Indication: INSOMNIA
     Route: 048
  4. SILECE [Concomitant]
     Route: 065
  5. CERCINE [Concomitant]
     Route: 065

REACTIONS (2)
  - IRRITABILITY [None]
  - SELF INJURIOUS BEHAVIOUR [None]
